FAERS Safety Report 6593295-X (Version None)
Quarter: 2010Q1

REPORT INFORMATION
  Report Type: 
  Country: None (occurrence: None)
  Receive Date: 20100222
  Receipt Date: 20090115
  Transmission Date: 20100710
  Serious: No
  Sender: FDA-Public Use
  Company Number: US-BRISTOL-MYERS SQUIBB COMPANY-14448781

PATIENT
  Age: 75 Year
  Sex: Female

DRUGS (14)
  1. ORENCIA [Suspect]
     Indication: RHEUMATOID ARTHRITIS
     Dosage: 2ND INFUSION
     Route: 042
     Dates: start: 20081210
  2. BENTYL [Concomitant]
  3. FLEXERIL [Concomitant]
  4. VICODIN ES [Concomitant]
  5. ASPIRIN [Concomitant]
  6. M.V.I. [Concomitant]
  7. NEUROTON [Concomitant]
     Dosage: TID
  8. HYDROCHLOROTHIAZIDE [Concomitant]
  9. ZYRTEC [Concomitant]
  10. ATENOLOL [Concomitant]
  11. LIPITOR [Concomitant]
  12. PREVACID [Concomitant]
  13. COLACE [Concomitant]
  14. DURAGESIC-100 [Concomitant]

REACTIONS (4)
  - BLOOD PRESSURE INCREASED [None]
  - HYPERHIDROSIS [None]
  - INFLUENZA LIKE ILLNESS [None]
  - TREMOR [None]
